FAERS Safety Report 24220622 (Version 1)
Quarter: 2024Q3

REPORT INFORMATION
  Report Type: Spontaneous
  Country: FR (occurrence: FR)
  Receive Date: 20240818
  Receipt Date: 20240818
  Transmission Date: 20241017
  Serious: Yes (Hospitalization)
  Sender: ACCORD
  Company Number: None

PATIENT
  Age: 31 Year
  Sex: Female
  Weight: 50 kg

DRUGS (13)
  1. METHOTREXATE [Suspect]
     Active Substance: METHOTREXATE
     Indication: Rheumatic disorder
     Dates: start: 202405, end: 20240716
  2. POLYETHYLENE GLYCOLS [Concomitant]
     Active Substance: POLYETHYLENE GLYCOLS
  3. SPASFON [Concomitant]
  4. NAPROXEN [Concomitant]
     Active Substance: NAPROXEN
  5. SYMBICORT [Concomitant]
     Active Substance: BUDESONIDE\FORMOTEROL FUMARATE DIHYDRATE
  6. CALCIFEDIOL [Concomitant]
     Active Substance: CALCIFEDIOL
  7. ALBUTEROL [Concomitant]
     Active Substance: ALBUTEROL
  8. RABEPRAZOLE SODIUM [Concomitant]
     Active Substance: RABEPRAZOLE SODIUM
  9. MONTELUKAST [Concomitant]
     Active Substance: MONTELUKAST SODIUM
  10. LIDOCAINE [Concomitant]
     Active Substance: LIDOCAINE
  11. EBASTINE [Concomitant]
     Active Substance: EBASTINE
  12. FOLIC ACID [Concomitant]
     Active Substance: FOLIC ACID
  13. TRAMADOL HYDROCHLORIDE [Concomitant]
     Active Substance: TRAMADOL HYDROCHLORIDE

REACTIONS (1)
  - Hepatic cytolysis [Recovering/Resolving]

NARRATIVE: CASE EVENT DATE: 20240601
